FAERS Safety Report 24195864 (Version 1)
Quarter: 2024Q3

REPORT INFORMATION
  Report Type: Spontaneous
  Country: US (occurrence: None)
  Receive Date: 20240804
  Receipt Date: 20240804
  Transmission Date: 20241016
  Serious: Yes (Hospitalization, Disabling)
  Sender: Public
  Company Number: None

PATIENT
  Age: 22 Year
  Sex: Female
  Weight: 54 kg

DRUGS (3)
  1. HERBALS\MUSHROOMS UNSPECIFIED [Suspect]
     Active Substance: HERBALS\MUSHROOMS UNSPECIFIED
     Indication: Substance use
     Route: 048
     Dates: start: 20240720, end: 20240720
  2. CANNABIS SATIVA SUBSP. INDICA TOP [Suspect]
     Active Substance: CANNABIS SATIVA SUBSP. INDICA TOP
  3. VYVANSE [Concomitant]
     Active Substance: LISDEXAMFETAMINE DIMESYLATE

REACTIONS (10)
  - Confusional state [None]
  - Disorientation [None]
  - Amnesia [None]
  - Speech disorder [None]
  - Paranoia [None]
  - Obsessive-compulsive disorder [None]
  - Angina pectoris [None]
  - Decreased appetite [None]
  - Insomnia [None]
  - Product contamination [None]

NARRATIVE: CASE EVENT DATE: 20240720
